FAERS Safety Report 18007617 (Version 1)
Quarter: 2020Q3

REPORT INFORMATION
  Report Type: Spontaneous
  Country: CN (occurrence: CN)
  Receive Date: 20200710
  Receipt Date: 20200710
  Transmission Date: 20201103
  Serious: Yes (Other)
  Sender: FDA-Public Use
  Company Number: CN-LEO PHARMA-318955

PATIENT
  Age: 37 Year
  Sex: Male

DRUGS (7)
  1. DAIVONEX [Suspect]
     Active Substance: CALCIPOTRIENE
     Indication: ERYTHRODERMIC PSORIASIS
     Route: 061
  2. VITAMIN E CREAM [Suspect]
     Active Substance: .ALPHA.-TOCOPHEROL
     Indication: ERYTHRODERMIC PSORIASIS
     Route: 061
  3. FOLIC ACID TABLET [Suspect]
     Active Substance: FOLIC ACID
     Indication: ERYTHRODERMIC PSORIASIS
     Route: 048
  4. TAZOBACTAM [Suspect]
     Active Substance: TAZOBACTAM
     Indication: ERYTHRODERMIC PSORIASIS
     Route: 017
  5. CEFTRIAXONE SODIUM. [Suspect]
     Active Substance: CEFTRIAXONE SODIUM
     Indication: ERYTHRODERMIC PSORIASIS
     Route: 017
  6. EBASTIN [Suspect]
     Active Substance: EBASTINE
     Indication: ERYTHRODERMIC PSORIASIS
     Route: 048
  7. DIAMMONIUM GLYCYRRHIZINATE [Suspect]
     Active Substance: HERBALS\DIAMMONIUM GLYCYRRHIZINATE
     Indication: ERYTHRODERMIC PSORIASIS
     Route: 042

REACTIONS (2)
  - Kaposi^s varicelliform eruption [Recovered/Resolved]
  - Product use in unapproved indication [Unknown]
